FAERS Safety Report 9008646 (Version 1)
Quarter: 2013Q1

REPORT INFORMATION
  Report Type: Other
  Country: JP (occurrence: JP)
  Receive Date: 20130111
  Receipt Date: 20130111
  Transmission Date: 20140127
  Serious: Yes (Hospitalization, Other)
  Sender: FDA-Public Use
  Company Number: JP-BRISTOL-MYERS SQUIBB COMPANY-17253063

PATIENT
  Age: 56 Year
  Sex: Female

DRUGS (6)
  1. STREPTOMYCIN [Suspect]
     Indication: TUBERCULOSIS
     Dates: start: 20100604
  2. RIFAMPICIN [Suspect]
     Indication: TUBERCULOSIS
     Dates: start: 20100604
  3. LEVOFLOXACIN [Suspect]
     Indication: TUBERCULOSIS
     Dates: start: 20100604
  4. ETHAMBUTOL [Suspect]
     Indication: TUBERCULOSIS
     Dates: start: 20100604
  5. ISONIAZID [Suspect]
     Indication: TUBERCULOSIS
     Dates: start: 20100908
  6. SALAZOSULFAPYRIDINE [Suspect]
     Indication: RHEUMATOID ARTHRITIS
     Dates: start: 20100609

REACTIONS (1)
  - Hypersensitivity [Recovering/Resolving]
